FAERS Safety Report 6342480-0 (Version None)
Quarter: 2009Q3

REPORT INFORMATION
  Report Type: 
  Country: None (occurrence: None)
  Receive Date: 20090908
  Receipt Date: 20041026
  Transmission Date: 20100115
  Serious: No
  Sender: FDA-Public Use
  Company Number: JP-ROCHE-385314

PATIENT

DRUGS (4)
  1. TAMIFLU [Suspect]
     Indication: DRUG USE FOR UNKNOWN INDICATION
     Dates: start: 20030317, end: 20030321
  2. LOXONIN [Concomitant]
     Dates: start: 20030317, end: 20030321
  3. KOLANTYL [Concomitant]
     Dates: start: 20030317, end: 20030321
  4. KLARICID [Concomitant]
     Dates: start: 20030319, end: 20030322

REACTIONS (1)
  - NORMAL NEWBORN [None]
